FAERS Safety Report 17248730 (Version 4)
Quarter: 2020Q2

REPORT INFORMATION
  Report Type: Spontaneous
  Country: US (occurrence: US)
  Receive Date: 20200108
  Receipt Date: 20200403
  Transmission Date: 20200713
  Serious: Yes (Other)
  Sender: FDA-Public Use
  Company Number: US-PFIZER INC-2020008664

PATIENT
  Age: 79 Year
  Sex: Female
  Weight: 72.56 kg

DRUGS (3)
  1. ESTRONE [Suspect]
     Active Substance: ESTRONE
     Indication: HORMONE THERAPY
     Dosage: 1 MG, DAILY
     Dates: start: 20190201
  2. IBRANCE [Suspect]
     Active Substance: PALBOCICLIB
     Indication: BREAST CANCER METASTATIC
     Dosage: 100 MG, CYCLIC (1 TABLET FOR DAYS 1-28)
  3. IBRANCE [Suspect]
     Active Substance: PALBOCICLIB
     Indication: NEOPLASM MALIGNANT
     Dosage: 75 MG, DAILY
     Dates: start: 20190201

REACTIONS (1)
  - Neutropenia [Unknown]
